FAERS Safety Report 10169177 (Version 1)
Quarter: 2014Q2

REPORT INFORMATION
  Report Type: Spontaneous
  Country: US (occurrence: US)
  Receive Date: 20140513
  Receipt Date: 20140513
  Transmission Date: 20141212
  Serious: No
  Sender: FDA-Public Use
  Company Number: US-TARO-2014P1003438

PATIENT
  Age: 3 Year
  Sex: Female
  Weight: 16.78 kg

DRUGS (4)
  1. CETIRIZINE HCL CHILDREN ORAL SOLUTION ALLERGY 1MG/ML (SUGARFREE GRAPE) [Suspect]
     Indication: RASH
     Route: 048
     Dates: start: 20140416, end: 20140417
  2. CETIRIZINE HCL CHILDREN ORAL SOLUTION ALLERGY 1MG/ML (SUGARFREE GRAPE) [Suspect]
     Indication: RASH
     Route: 048
     Dates: start: 20140417, end: 20140417
  3. CETIRIZINE HCL CHILDREN ORAL SOLUTION ALLERGY 1MG/ML (SUGARFREE GRAPE) [Suspect]
     Indication: RASH
     Route: 048
     Dates: start: 20140417, end: 20140417
  4. COLD MEDICINE (HYLANS) [Concomitant]
     Dates: end: 20140415

REACTIONS (3)
  - Somnolence [Recovered/Resolved]
  - Off label use [Not Recovered/Not Resolved]
  - Accidental overdose [Not Recovered/Not Resolved]
